FAERS Safety Report 25641246 (Version 1)
Quarter: 2025Q3

REPORT INFORMATION
  Report Type: Spontaneous
  Country: AU (occurrence: AU)
  Receive Date: 20250804
  Receipt Date: 20250804
  Transmission Date: 20251021
  Serious: Yes (Other)
  Sender: MYLAN
  Company Number: None

PATIENT
  Age: 50 Year

DRUGS (12)
  1. CELEBREX [Suspect]
     Active Substance: CELECOXIB
     Indication: Product used for unknown indication
  2. CELEBREX [Suspect]
     Active Substance: CELECOXIB
     Route: 065
  3. CELEBREX [Suspect]
     Active Substance: CELECOXIB
     Route: 065
  4. CELEBREX [Suspect]
     Active Substance: CELECOXIB
  5. CANNABIDIOL [Suspect]
     Active Substance: CANNABIDIOL
     Indication: Nerve injury
     Route: 048
  6. CANNABIDIOL [Suspect]
     Active Substance: CANNABIDIOL
     Indication: Neuralgia
  7. CANNABIDIOL [Suspect]
     Active Substance: CANNABIDIOL
  8. CANNABIDIOL [Suspect]
     Active Substance: CANNABIDIOL
     Route: 048
  9. CANNABIDIOL [Suspect]
     Active Substance: CANNABIDIOL
     Route: 048
     Dates: start: 20221116, end: 20221207
  10. CANNABIDIOL [Suspect]
     Active Substance: CANNABIDIOL
     Dates: start: 20221116, end: 20221207
  11. CANNABIDIOL [Suspect]
     Active Substance: CANNABIDIOL
     Dates: start: 20221116, end: 20221207
  12. CANNABIDIOL [Suspect]
     Active Substance: CANNABIDIOL
     Route: 048
     Dates: start: 20221116, end: 20221207

REACTIONS (14)
  - Hangover [Recovered/Resolved]
  - Dry mouth [Recovering/Resolving]
  - Swollen tongue [Recovered/Resolved]
  - Salivary hyposecretion [Not Recovered/Not Resolved]
  - Depression [Recovered/Resolved]
  - Dysgeusia [Recovered/Resolved]
  - Gastrooesophageal reflux disease [Recovered/Resolved]
  - Lymphadenopathy [Recovered/Resolved]
  - Tongue coated [Recovered/Resolved]
  - Sleep disorder [Recovered/Resolved]
  - Oral pain [Not Recovered/Not Resolved]
  - Vomiting [Recovered/Resolved]
  - Dysphagia [Recovered/Resolved]
  - Abdominal pain upper [Recovered/Resolved]

NARRATIVE: CASE EVENT DATE: 20221128
